FAERS Safety Report 25100661 (Version 2)
Quarter: 2025Q3

REPORT INFORMATION
  Report Type: Report from Study
  Country: CN (occurrence: CN)
  Receive Date: 20250320
  Receipt Date: 20250809
  Transmission Date: 20251020
  Serious: Yes (Other)
  Sender: ALEXION PHARMACEUTICALS
  Company Number: CN-ASTRAZENECA-202503GLO012251CN

PATIENT
  Age: 10 Year
  Sex: Male

DRUGS (12)
  1. SELUMETINIB [Suspect]
     Active Substance: SELUMETINIB
     Dosage: 30.000 MILLIGRAM, BID
     Route: 065
     Dates: start: 20240815, end: 20240921
  2. SELUMETINIB [Suspect]
     Active Substance: SELUMETINIB
     Dosage: 30.000 MILLIGRAM, QD
     Route: 065
     Dates: start: 20240922, end: 20241018
  3. SELUMETINIB [Suspect]
     Active Substance: SELUMETINIB
     Dosage: 20.000 MILLIGRAM, QD
     Route: 065
     Dates: start: 20240922, end: 20241018
  4. SELUMETINIB [Suspect]
     Active Substance: SELUMETINIB
     Dosage: 30.000 MILLIGRAM, QD
     Route: 065
     Dates: start: 20241019, end: 20241019
  5. SELUMETINIB [Suspect]
     Active Substance: SELUMETINIB
     Dosage: 20.000 MILLIGRAM, QD
     Route: 065
     Dates: start: 20241103, end: 20241216
  6. SELUMETINIB [Suspect]
     Active Substance: SELUMETINIB
     Dosage: 10.000 MILLIGRAM, QD
     Route: 065
     Dates: start: 20241103, end: 20241216
  7. SELUMETINIB [Suspect]
     Active Substance: SELUMETINIB
     Dosage: 20.000 MILLIGRAM, QD
     Route: 065
     Dates: start: 20241221
  8. SELUMETINIB [Suspect]
     Active Substance: SELUMETINIB
     Dosage: 10.000 MILLIGRAM, QD
     Route: 065
     Dates: start: 20241221
  9. UREA [Concomitant]
     Active Substance: UREA
     Route: 065
  10. Compound lactic acid [Concomitant]
     Route: 065
  11. CEFUROXIME SODIUM [Concomitant]
     Active Substance: CEFUROXIME SODIUM
     Dosage: UNK GRAM, Q8H
     Route: 065
     Dates: start: 20250308, end: 20250310
  12. Healthy care traditional chinese medicine liver tonic [Concomitant]
     Route: 065
     Dates: start: 20250308, end: 20250308

REACTIONS (1)
  - Hyperbilirubinaemia [Not Recovered/Not Resolved]

NARRATIVE: CASE EVENT DATE: 20250307
